FAERS Safety Report 22941765 (Version 5)
Quarter: 2023Q4

REPORT INFORMATION
  Report Type: Spontaneous
  Country: HU (occurrence: None)
  Receive Date: 20230914
  Receipt Date: 20231121
  Transmission Date: 20240110
  Serious: Yes (Death)
  Sender: FDA-Public Use
  Company Number: HU-ROCHE-3420606

PATIENT
  Age: 2 Year
  Sex: Male
  Weight: 8.265 kg

DRUGS (3)
  1. EVRYSDI [Suspect]
     Active Substance: RISDIPLAM
     Indication: Spinal muscular atrophy
     Route: 065
     Dates: start: 202109
  2. VIGANTOL [Concomitant]
     Dosage: 1X DROP
  3. MOTILIUM [Concomitant]
     Active Substance: DOMPERIDONE

REACTIONS (5)
  - Hypoxic-ischaemic encephalopathy [Fatal]
  - Circulatory collapse [Fatal]
  - Respiratory failure [Fatal]
  - Respiratory disorder [Fatal]
  - Hypotension [Unknown]

NARRATIVE: CASE EVENT DATE: 20230822
